FAERS Safety Report 17243700 (Version 1)
Quarter: 2020Q1

REPORT INFORMATION
  Report Type: Spontaneous
  Country: US (occurrence: US)
  Receive Date: 20200107
  Receipt Date: 20200107
  Transmission Date: 20200409
  Serious: Yes (Other)
  Sender: FDA-Public Use
  Company Number: US-ROCHE-2232735

PATIENT
  Age: 26 Year
  Sex: Female

DRUGS (6)
  1. ACTILYSE [Suspect]
     Active Substance: ALTEPLASE
     Indication: PULMONARY EMBOLISM
     Route: 042
  2. ACTILYSE [Suspect]
     Active Substance: ALTEPLASE
     Dosage: OVER 4 HOURS
     Route: 042
  3. ACTILYSE [Suspect]
     Active Substance: ALTEPLASE
     Indication: OBSTRUCTIVE SHOCK
     Dosage: OVER 2 HOURS
     Route: 042
  4. NOREPINEPHRINE. [Concomitant]
     Active Substance: NOREPINEPHRINE
     Dosage: 30 MCG/MIN
     Route: 065
  5. NOREPINEPHRINE. [Concomitant]
     Active Substance: NOREPINEPHRINE
     Dosage: 20 MCG/MIN
     Route: 065
  6. DOBUTAMINE [Concomitant]
     Active Substance: DOBUTAMINE HYDROCHLORIDE
     Dosage: 7.5 OF MCG/KG/MIN
     Route: 065

REACTIONS (1)
  - Peritoneal haemorrhage [Recovered/Resolved]
